FAERS Safety Report 9954518 (Version 1)
Quarter: 2014Q1

REPORT INFORMATION
  Report Type: Report from Study
  Country: US (occurrence: US)
  Receive Date: 20140304
  Receipt Date: 20140304
  Transmission Date: 20141002
  Serious: No
  Sender: FDA-Public Use
  Company Number: US-ABBVIE-13P-163-1083314-00

PATIENT
  Age: 50 Year
  Sex: Female

DRUGS (9)
  1. HUMIRA [Suspect]
     Indication: RHEUMATOID ARTHRITIS
     Dates: start: 201303
  2. METFORMIN [Concomitant]
     Indication: BLOOD GLUCOSE
  3. METFORMIN [Concomitant]
     Indication: DIABETES MELLITUS
  4. VITAMIN D2 [Concomitant]
     Indication: PRODUCT USED FOR UNKNOWN INDICATION
  5. OMEPRAZOLE [Concomitant]
     Indication: DYSPEPSIA
     Dosage: 20 MG DAILY
  6. MICROZIDE [Concomitant]
     Indication: HYPERTENSION
     Dosage: 25 MG DAILY
  7. KLOR-CON [Concomitant]
     Indication: BLOOD POTASSIUM
     Dosage: DAILY
  8. PREDNISONE [Concomitant]
     Indication: PRODUCT USED FOR UNKNOWN INDICATION
     Dosage: TAPERING DOWN FROM 10 MG TO 5 MG
  9. CORTISONE [Concomitant]
     Indication: ARTHRITIS
     Route: 050

REACTIONS (8)
  - Drug ineffective [Not Recovered/Not Resolved]
  - Injection site pain [Not Recovered/Not Resolved]
  - Arthralgia [Not Recovered/Not Resolved]
  - Poor quality sleep [Not Recovered/Not Resolved]
  - Joint swelling [Not Recovered/Not Resolved]
  - Joint stiffness [Not Recovered/Not Resolved]
  - Pain in extremity [Not Recovered/Not Resolved]
  - Abasia [Not Recovered/Not Resolved]
